FAERS Safety Report 15087805 (Version 1)
Quarter: 2018Q2

REPORT INFORMATION
  Report Type: Report from Study
  Country: DE (occurrence: DE)
  Receive Date: 20180629
  Receipt Date: 20180629
  Transmission Date: 20180711
  Serious: Yes (Other)
  Sender: FDA-Public Use
  Company Number: DE-UCBSA-2018027477

PATIENT
  Sex: Female

DRUGS (1)
  1. ROTIGOTINE [Suspect]
     Active Substance: ROTIGOTINE
     Indication: RESTLESS LEGS SYNDROME
     Dosage: 8 MG, ONCE DAILY (QD)
     Route: 062

REACTIONS (4)
  - Off label use [Unknown]
  - Incisional hernia [Recovering/Resolving]
  - Inguinal hernia [Recovering/Resolving]
  - Overdose [Unknown]
